FAERS Safety Report 5820367-7 (Version None)
Quarter: 2008Q3

REPORT INFORMATION
  Report Type: 
  Country: None (occurrence: None)
  Receive Date: 20080724
  Receipt Date: 20070618
  Transmission Date: 20090109
  Serious: No
  Sender: FDA-Public Use
  Company Number: A0657197A

PATIENT
  Age: 49 Year
  Sex: Male

DRUGS (8)
  1. AVANDIA [Suspect]
     Dosage: 1TAB PER DAY
     Route: 048
     Dates: start: 20070611
  2. GABAPENTIN [Concomitant]
  3. GLUCOPHAGE [Concomitant]
  4. MICRONASE [Concomitant]
  5. LOPID [Concomitant]
  6. DESIPRAMINE HCL [Concomitant]
  7. FELDENE [Concomitant]
  8. KEPPRA [Concomitant]

REACTIONS (5)
  - ASTHENIA [None]
  - FATIGUE [None]
  - MALAISE [None]
  - MYALGIA [None]
  - PALLOR [None]
